FAERS Safety Report 4483975-4 (Version None)
Quarter: 2004Q4

REPORT INFORMATION
  Report Type: 
  Country: None (occurrence: None)
  Receive Date: 20041025
  Receipt Date: 20040623
  Transmission Date: 20050328
  Serious: Yes (Hospitalization)
  Sender: FDA-Public Use
  Company Number: US-ROCHE-372160

PATIENT
  Age: 48 Year
  Sex: Male
  Weight: 90.7 kg

DRUGS (10)
  1. PEGASYS [Suspect]
     Indication: HEPATITIS C
     Dosage: STRENGTH: 180MCG/0.5ML. PATIENT USED PREFILLED SYRINGES.
     Route: 058
     Dates: start: 20040416, end: 20040915
  2. PEGASYS [Suspect]
     Route: 058
     Dates: start: 20040915
  3. COPEGUS [Suspect]
     Indication: HEPATITIS C
     Route: 048
     Dates: start: 20040416
  4. AVALIDE [Concomitant]
     Indication: HYPERTENSION
     Dosage: DOSAGE REGIMEN: 150/12.5MG QD
     Route: 048
  5. FLOMAX [Concomitant]
     Dosage: DAILY
     Route: 048
  6. CYTOMEL [Concomitant]
     Dosage: DAILY
     Route: 048
  7. FLEXERIL [Concomitant]
     Route: 048
  8. ADVAIR DISKUS 100/50 [Concomitant]
     Dosage: ROUTE: INHALER
     Route: 050
  9. ALBUTEROL [Concomitant]
     Dosage: ROUTE: INHALER
     Route: 050
  10. DARVON [Concomitant]
     Indication: BACK PAIN
     Dosage: PATIENT CAN TAKE DARVON UP TO 3 TIMES A DAY PRN
     Route: 048

REACTIONS (6)
  - CHRONIC OBSTRUCTIVE AIRWAYS DISEASE [None]
  - DEPRESSION [None]
  - DISEASE RECURRENCE [None]
  - HYPERSOMNIA [None]
  - PNEUMONIA [None]
  - WHITE BLOOD CELL COUNT DECREASED [None]
